FAERS Safety Report 25482010 (Version 1)
Quarter: 2025Q2

REPORT INFORMATION
  Report Type: Spontaneous
  Country: DE (occurrence: DE)
  Receive Date: 20250626
  Receipt Date: 20250626
  Transmission Date: 20250717
  Serious: Yes (Hospitalization, Other)
  Sender: ALKEM
  Company Number: DE-ALKEM LABORATORIES LIMITED-DE-ALKEM-2025-06458

PATIENT
  Sex: Female

DRUGS (10)
  1. IBUPROFEN [Suspect]
     Active Substance: IBUPROFEN
     Indication: Product used for unknown indication
     Route: 065
     Dates: start: 20221117, end: 20230215
  2. IBUPROFEN [Suspect]
     Active Substance: IBUPROFEN
     Route: 065
     Dates: start: 20230927, end: 20240319
  3. CELECOXIB [Suspect]
     Active Substance: CELECOXIB
     Indication: Product used for unknown indication
     Route: 065
     Dates: start: 20230216, end: 20230926
  4. ETORICOXIB [Suspect]
     Active Substance: ETORICOXIB
     Indication: Product used for unknown indication
     Route: 065
     Dates: start: 20211008, end: 20221116
  5. HYRIMOZ [Suspect]
     Active Substance: ADALIMUMAB-ADAZ
     Indication: Product used for unknown indication
     Route: 065
     Dates: start: 20220428, end: 20220809
  6. METHOTREXATE [Suspect]
     Active Substance: METHOTREXATE
     Indication: Product used for unknown indication
     Route: 065
     Dates: start: 20230617, end: 20240306
  7. SECUKINUMAB [Suspect]
     Active Substance: SECUKINUMAB
     Indication: Axial spondyloarthritis
     Route: 065
     Dates: start: 20220810, end: 20230215
  8. SECUKINUMAB [Suspect]
     Active Substance: SECUKINUMAB
     Indication: Psoriatic arthropathy
  9. ETANERCEPT [Concomitant]
     Active Substance: ETANERCEPT
     Indication: Product used for unknown indication
     Route: 065
     Dates: start: 20211015
  10. TREMFYA [Concomitant]
     Active Substance: GUSELKUMAB
     Indication: Product used for unknown indication
     Route: 065
     Dates: start: 20230216, end: 20240306

REACTIONS (1)
  - Lung adenocarcinoma stage IV [Unknown]

NARRATIVE: CASE EVENT DATE: 20231215
